FAERS Safety Report 24381474 (Version 2)
Quarter: 2024Q4

REPORT INFORMATION
  Report Type: Spontaneous
  Country: JP (occurrence: JP)
  Receive Date: 20241001
  Receipt Date: 20241007
  Transmission Date: 20250115
  Serious: Yes (Life-Threatening, Hospitalization, Other)
  Sender: ACCORD
  Company Number: JP-Accord-448734

PATIENT
  Age: 40 Week
  Sex: Female
  Weight: 3.01 kg

DRUGS (3)
  1. CLOZAPINE [Suspect]
     Active Substance: CLOZAPINE
     Route: 064
  2. MAGNESIUM OXIDE [Suspect]
     Active Substance: MAGNESIUM OXIDE
     Route: 064
  3. MIDODRINE [Suspect]
     Active Substance: MIDODRINE
     Route: 064

REACTIONS (5)
  - Foetal exposure during pregnancy [Unknown]
  - Foetal heart rate decreased [Unknown]
  - Foetal heart rate deceleration abnormality [Unknown]
  - Antipsychotic drug level increased [Unknown]
  - Drug metabolite level high [Unknown]
